FAERS Safety Report 18853533 (Version 2)
Quarter: 2021Q1

REPORT INFORMATION
  Report Type: Spontaneous
  Country: DE (occurrence: DE)
  Receive Date: 20210205
  Receipt Date: 20210210
  Transmission Date: 20210420
  Serious: Yes (Other)
  Sender: FDA-Public Use
  Company Number: DE-ASTRAZENECA-2021A025698

PATIENT
  Sex: Female

DRUGS (4)
  1. LYNPARZA [Suspect]
     Active Substance: OLAPARIB
     Route: 048
  2. LYNPARZA [Suspect]
     Active Substance: OLAPARIB
     Dosage: DID NOT TOOK YNPARZA IN THE EVENING
     Route: 048
     Dates: start: 20210128
  3. LYNPARZA [Suspect]
     Active Substance: OLAPARIB
     Dosage: 250 MG IN THE MORNING AND 300 MG IN THE EVENING SINCE ONE YEAR
     Route: 048
  4. LYNPARZA [Suspect]
     Active Substance: OLAPARIB
     Dosage: ONLY TOOK 150 MG LYNPARZA TABLET, OMITTED THE 100 MG TABLET
     Route: 048
     Dates: start: 20210129

REACTIONS (12)
  - Hair growth abnormal [Unknown]
  - Hypoaesthesia [Unknown]
  - Feeling hot [Unknown]
  - Alopecia [Unknown]
  - Pelvic pain [Unknown]
  - Abdominal hernia [Unknown]
  - Gastrointestinal pain [Unknown]
  - Feeling cold [Unknown]
  - Osteoporosis [Unknown]
  - Dyschezia [Not Recovered/Not Resolved]
  - Perineal pain [Unknown]
  - Intentional device misuse [Unknown]

NARRATIVE: CASE EVENT DATE: 20210128
